FAERS Safety Report 24047624 (Version 3)
Quarter: 2024Q3

REPORT INFORMATION
  Report Type: Spontaneous
  Country: CN (occurrence: CN)
  Receive Date: 20240703
  Receipt Date: 20240828
  Transmission Date: 20241016
  Serious: Yes (Death, Hospitalization, Other)
  Sender: PFIZER
  Company Number: CN-PFIZER INC-PV202400081750

PATIENT
  Age: 64 Year
  Sex: Female

DRUGS (17)
  1. MEDROL [Suspect]
     Active Substance: METHYLPREDNISOLONE
     Indication: Autoimmune disorder
     Dosage: 8 MG, 1X/DAY
     Route: 048
     Dates: start: 20240617
  2. MEDROL [Suspect]
     Active Substance: METHYLPREDNISOLONE
     Dosage: 8 MG, 1X/DAY
     Route: 048
     Dates: start: 20240624, end: 20240624
  3. SOLU-MEDROL [Suspect]
     Active Substance: METHYLPREDNISOLONE SODIUM SUCCINATE
     Indication: Autoimmune disorder
     Dosage: 80 MG, DAILY (EVERY 24 HOURS, 30 DROPS/MIN)
     Route: 041
     Dates: start: 20240624
  4. ADEMETIONINE BUTANEDISULFONATE [Concomitant]
     Active Substance: ADEMETIONINE BUTANEDISULFONATE
     Dosage: 1 G, DAILY(Q24H, 60 DROPS/MIN)
     Route: 041
     Dates: start: 20240624
  5. SODIUM CHLORIDE [Concomitant]
     Active Substance: SODIUM CHLORIDE
     Dosage: 250 ML, DAILY(60 DROPS/MIN, Q24H)
     Route: 041
     Dates: start: 20240624
  6. SODIUM CHLORIDE [Concomitant]
     Active Substance: SODIUM CHLORIDE
     Dosage: 50 ML, DAILY(30 DROPS/MIN, Q24H)
     Route: 041
     Dates: start: 20240624
  7. SODIUM CHLORIDE [Concomitant]
     Active Substance: SODIUM CHLORIDE
     Dosage: 500 ML, DAILY(INJECTED VIA INTRAVENOUS CATHETER, Q24H)
     Route: 042
     Dates: start: 20240624
  8. JEVITY [CASEIN;FIBRE, DIETARY;HERBAL OIL NOS;MALTODEXTRIN;MINERALS NOS [Concomitant]
     Dosage: 500 ML, 1X/DAY(TUBE-FEEDING)
     Dates: start: 20240624
  9. MOXIFLOXACIN HYDROCHLORIDE [Concomitant]
     Active Substance: MOXIFLOXACIN HYDROCHLORIDE\MOXIFLOXACIN HYDROCHLORIDE MONOHYDRATE
     Indication: Infection
     Dosage: 250 ML, DAILY(CONTAINING MOXIFLOXACIN 0.4 G, 30 DROPS/MIN, Q24H)
     Route: 041
     Dates: start: 20240624
  10. METOPROLOL TARTRATE [Concomitant]
     Active Substance: METOPROLOL TARTRATE
     Dosage: 12.5 MG, 3X/DAY(TUBE-FEEDING, EVERY 8 HOURS)
     Dates: start: 20240624
  11. HEPARIN SODIUM [Concomitant]
     Active Substance: HEPARIN SODIUM
     Dosage: 1000 IU, DAILY(INJECTED VIA INTRAVENOUS CATHETER, Q24H)
     Route: 042
     Dates: start: 20240624
  12. BIFICO [Concomitant]
     Dosage: 420 MG, 2X/DAY(TUBE-FEEDING)
     Dates: start: 20240624
  13. MEDILAC-S [Concomitant]
     Dosage: 500 MG, 2X/DAY(ORAL ROUTE AS REPORTED)
     Route: 048
     Dates: start: 20240624
  14. LEUCOGEN [Concomitant]
     Active Substance: LEUCOGEN
     Dosage: 20 MG, 3X/DAY(TUBE-FEEDING)
     Dates: start: 20240624
  15. BICYCLOL [Concomitant]
     Active Substance: BICYCLOL
     Dosage: 50 MG, 3X/DAY(TUBE-FEEDING)
     Dates: start: 20240624
  16. MEROPENEM [Concomitant]
     Active Substance: MEROPENEM
     Indication: Infection
     Dosage: UNK
     Dates: start: 202406
  17. NUZYRA [Concomitant]
     Active Substance: OMADACYCLINE
     Indication: Pneumonia bacterial
     Dosage: 0.2 G, 1X/DAY
     Route: 041
     Dates: start: 20240618, end: 202406

REACTIONS (4)
  - Hepatic failure [Fatal]
  - Pneumonia [Fatal]
  - Drug ineffective for unapproved indication [Unknown]
  - Off label use [Unknown]

NARRATIVE: CASE EVENT DATE: 20240101
